FAERS Safety Report 10866148 (Version 1)
Quarter: 2015Q1

REPORT INFORMATION
  Report Type: Spontaneous
  Country: US (occurrence: None)
  Receive Date: 20150219
  Receipt Date: 20150219
  Transmission Date: 20150721
  Serious: Yes (Other)
  Sender: FDA-Public Use
  Company Number: None

PATIENT
  Age: 35 Year
  Sex: Female
  Weight: 63.5 kg

DRUGS (4)
  1. PERCOCET [Suspect]
     Active Substance: ACETAMINOPHEN\OXYCODONE HYDROCHLORIDE
     Indication: SCOLIOSIS
     Dosage: 1 PIOLL THREE TIMES DAILY TAKEN BY MOUTH
     Route: 048
     Dates: start: 20140820, end: 20140930
  2. PERCOCET [Suspect]
     Active Substance: ACETAMINOPHEN\OXYCODONE HYDROCHLORIDE
     Indication: MIGRAINE
     Dosage: 1 PIOLL THREE TIMES DAILY TAKEN BY MOUTH
     Route: 048
     Dates: start: 20140820, end: 20140930
  3. PERCOCET [Suspect]
     Active Substance: ACETAMINOPHEN\OXYCODONE HYDROCHLORIDE
     Indication: SPINAL DISORDER
     Dosage: 1 PIOLL THREE TIMES DAILY TAKEN BY MOUTH
     Route: 048
     Dates: start: 20140820, end: 20140930
  4. PERCOCET [Suspect]
     Active Substance: ACETAMINOPHEN\OXYCODONE HYDROCHLORIDE
     Indication: SCIATICA
     Dosage: 1 PIOLL THREE TIMES DAILY TAKEN BY MOUTH
     Route: 048
     Dates: start: 20140820, end: 20140930

REACTIONS (3)
  - Asthenia [None]
  - Malaise [None]
  - Bacterial infection [None]

NARRATIVE: CASE EVENT DATE: 20141001
